FAERS Safety Report 22266927 (Version 2)
Quarter: 2023Q2

REPORT INFORMATION
  Report Type: Other
  Country: US (occurrence: None)
  Receive Date: 20230428
  Receipt Date: 20230503
  Transmission Date: 20230721
  Serious: Yes (Death)
  Sender: FDA-Public Use
  Company Number: US-ROCHE-3340694

PATIENT
  Age: 74 Year
  Sex: Male

DRUGS (5)
  1. ERIVEDGE [Suspect]
     Active Substance: VISMODEGIB
     Indication: Basal cell carcinoma
     Dosage: TAKE 1 CAPSULE BY MOUTH EVERY DAY
     Route: 048
  2. ERIVEDGE [Suspect]
     Active Substance: VISMODEGIB
     Indication: Basal cell carcinoma
  3. CARVEDILOL [Concomitant]
     Active Substance: CARVEDILOL
  4. CRESTOR [Concomitant]
     Active Substance: ROSUVASTATIN CALCIUM
  5. ELIQUIS [Concomitant]
     Active Substance: APIXABAN

REACTIONS (1)
  - Death [Fatal]
